FAERS Safety Report 20300361 (Version 1)
Quarter: 2022Q1

REPORT INFORMATION
  Report Type: Spontaneous
  Country: IL (occurrence: IL)
  Receive Date: 20220105
  Receipt Date: 20220105
  Transmission Date: 20220423
  Serious: Yes (Hospitalization, Other)
  Sender: FDA-Public Use
  Company Number: IL-LUPIN PHARMACEUTICALS INC.-2021-26375

PATIENT
  Age: 64 Year
  Sex: Female

DRUGS (4)
  1. OXYCODONE [Suspect]
     Active Substance: OXYCODONE
     Indication: Spinal pain
     Dosage: 15 MILLIGRAM, BID
     Route: 065
  2. OXYCODONE [Suspect]
     Active Substance: OXYCODONE
     Indication: Arachnoiditis
  3. PERCOCET [Suspect]
     Active Substance: ACETAMINOPHEN\OXYCODONE HYDROCHLORIDE
     Indication: Spinal pain
     Dosage: 5/325 MG, TID
     Route: 065
  4. PERCOCET [Suspect]
     Active Substance: ACETAMINOPHEN\OXYCODONE HYDROCHLORIDE
     Indication: Arachnoiditis

REACTIONS (5)
  - Constipation [Recovered/Resolved]
  - Faecaloma [Recovered/Resolved]
  - Perforation [Recovered/Resolved]
  - Pneumoperitoneum [Recovered/Resolved]
  - Peritonitis [Recovered/Resolved]
